FAERS Safety Report 14080632 (Version 1)
Quarter: 2017Q4

REPORT INFORMATION
  Report Type: Report from Study
  Country: JP (occurrence: JP)
  Receive Date: 20171012
  Receipt Date: 20171012
  Transmission Date: 20180321
  Serious: Yes (Hospitalization)
  Sender: FDA-Public Use
  Company Number: JP-BRISTOL-MYERS SQUIBB COMPANY-13144621

PATIENT
  Sex: Male

DRUGS (20)
  1. VIREAD [Suspect]
     Active Substance: TENOFOVIR DISOPROXIL FUMARATE
     Indication: HIV INFECTION
     Dosage: UNK
     Route: 048
     Dates: start: 20040705, end: 20050331
  2. STOCRIN [Concomitant]
     Active Substance: EFAVIRENZ
     Indication: PRODUCT USED FOR UNKNOWN INDICATION
     Dosage: THERAPY: 25-APR-2002-01-APR-2003;22-MAR-2004-10-JUN-2004;05-JUL-2004-04-NOV-2004.
     Route: 048
     Dates: start: 20020425, end: 20041104
  3. COMBIVIR [Concomitant]
     Active Substance: LAMIVUDINE\ZIDOVUDINE
     Indication: PRODUCT USED FOR UNKNOWN INDICATION
     Dosage: UNK
     Route: 048
     Dates: start: 20040322, end: 20040610
  4. AMOBAN [Concomitant]
     Active Substance: ZOPICLONE
     Indication: PRODUCT USED FOR UNKNOWN INDICATION
     Dosage: THERAPY: 05-JUL-2004-07-OCT-2004; 12-NOV-2004-UNK.
     Route: 048
     Dates: start: 20040705
  5. LOXONIN [Concomitant]
     Active Substance: LOXOPROFEN SODIUM
     Indication: PRODUCT USED FOR UNKNOWN INDICATION
     Dosage: 60 MG, QD
     Route: 048
     Dates: start: 20050124
  6. FANSIDAR [Concomitant]
     Active Substance: PYRIMETHAMINE\SULFADOXINE
     Indication: PRODUCT USED FOR UNKNOWN INDICATION
     Dosage: THERAPY:200MG6FEB04;100MG7FEB04-19FEB04;10MG02MAR04-07MAR04;25MG08MAR04-10MAY04.
     Route: 048
     Dates: start: 20040206, end: 20040510
  7. ATAZANAVIR SULFATE. [Suspect]
     Active Substance: ATAZANAVIR SULFATE
     Indication: HIV INFECTION
     Dosage: 400 MG 05-NOV-2004-23-JAN-2005; 300 MG 24-JAN-2005-31-MAR-2005
     Route: 048
     Dates: start: 20041105, end: 20050331
  8. LOPEMIN [Concomitant]
     Active Substance: LOPERAMIDE HYDROCHLORIDE
     Indication: PRODUCT USED FOR UNKNOWN INDICATION
     Dosage: THERAPY: 1 MG 1/DAY 03-JUN-2004-10-JUN-2004; 1 MG 2/DAY 15-SEP-2004-UNK
     Route: 048
     Dates: start: 20040603
  9. EPIVIR [Suspect]
     Active Substance: LAMIVUDINE
     Indication: HIV INFECTION
     Dosage: 4/1/02 TO 4/24/02 THEN 300 MG 7/5/04 TO 3/31/05
     Route: 048
     Dates: start: 20020401, end: 20050331
  10. LENDORMIN [Concomitant]
     Active Substance: BROTIZOLAM
     Indication: PRODUCT USED FOR UNKNOWN INDICATION
     Dosage: THERAPY: 29-FEB-2004-19-MAR-2004; 01-APR-2004-08-JUN-2004.
     Route: 048
     Dates: start: 20040229, end: 20040608
  11. FLURAZEPAM HCL [Concomitant]
     Active Substance: FLURAZEPAM HYDROCHLORIDE
     Indication: PRODUCT USED FOR UNKNOWN INDICATION
     Dosage: 15 MG, QD
     Route: 048
     Dates: start: 20041022, end: 20050113
  12. VOLTAREN [Concomitant]
     Active Substance: DICLOFENAC SODIUM
     Indication: PRODUCT USED FOR UNKNOWN INDICATION
     Dosage: UNK
     Route: 048
     Dates: start: 20040705, end: 20041007
  13. EURODIN [Concomitant]
     Indication: PRODUCT USED FOR UNKNOWN INDICATION
     Dosage: 2 MG, QD
     Route: 048
     Dates: start: 20040916, end: 20040930
  14. BENZALIN                           /00036201/ [Concomitant]
     Active Substance: NITRAZEPAM
     Indication: PRODUCT USED FOR UNKNOWN INDICATION
     Dosage: 10 MG, QD
     Route: 048
     Dates: start: 20041008, end: 20041021
  15. NORVIR [Suspect]
     Active Substance: RITONAVIR
     Indication: HIV INFECTION
     Dosage: UNK
     Route: 048
     Dates: start: 20041225, end: 20050331
  16. INTEBAN [Concomitant]
     Active Substance: INDOMETHACIN
     Indication: PRODUCT USED FOR UNKNOWN INDICATION
     Dosage: THERAPY:20 MG 2/DAY 01APR04-03JUN04; 25 MG 1/DAY 01OCT04-11NOV04.
     Route: 048
     Dates: start: 20040401, end: 20041111
  17. KELNAC [Concomitant]
     Active Substance: PLAUNOTOL
     Indication: PRODUCT USED FOR UNKNOWN INDICATION
     Dosage: UNK
     Route: 048
     Dates: start: 20040705, end: 20041007
  18. ROHYPNOL [Concomitant]
     Active Substance: FLUNITRAZEPAM
     Indication: PRODUCT USED FOR UNKNOWN INDICATION
     Dosage: 2 MG, QD
     Route: 048
     Dates: start: 20050329, end: 20050331
  19. DIFLUCAN [Concomitant]
     Active Substance: FLUCONAZOLE
     Indication: PRODUCT USED FOR UNKNOWN INDICATION
     Dosage: THERAPY:02MAY02-27MAY02;20JAN03-27JAN03;29FEB2004-06MAR2004;15MAR2004-22MAR2004;01APR2004-05APR2004.
     Route: 048
     Dates: start: 20020502, end: 20040405
  20. LEUCOVORIN. [Concomitant]
     Active Substance: LEUCOVORIN
     Indication: PRODUCT USED FOR UNKNOWN INDICATION
     Dosage: 15 MG, QD
     Route: 048
     Dates: start: 20040207, end: 20040510

REACTIONS (1)
  - Hyperlactacidaemia [Not Recovered/Not Resolved]
